FAERS Safety Report 4305428-6 (Version None)
Quarter: 2004Q1

REPORT INFORMATION
  Report Type: 
  Country: None (occurrence: None)
  Receive Date: 20040226
  Receipt Date: 20031201
  Transmission Date: 20041129
  Serious: No
  Sender: FDA-Public Use
  Company Number: US-BRISTOL-MYERS SQUIBB COMPANY-12445680

PATIENT
  Age: 75 Year
  Sex: Female
  Weight: 61 kg

DRUGS (1)
  1. TAXOL [Suspect]
     Indication: BREAST CANCER
     Route: 042
     Dates: start: 20030901, end: 20031025

REACTIONS (1)
  - NEUROPATHY PERIPHERAL [None]
